FAERS Safety Report 10756824 (Version 1)
Quarter: 2015Q1

REPORT INFORMATION
  Report Type: Spontaneous
  Country: US (occurrence: US)
  Receive Date: 20150203
  Receipt Date: 20150203
  Transmission Date: 20150721
  Serious: Yes (Other)
  Sender: FDA-Public Use
  Company Number: US-CIPLA LTD.-2015US00813

PATIENT
  Sex: Female

DRUGS (4)
  1. TOPOTECAN [Suspect]
     Active Substance: TOPOTECAN\TOPOTECAN HYDROCHLORIDE
     Indication: CERVIX CARCINOMA
     Dosage: 0.6 MG/M2, QD, ON DAYS 1 TO 5
     Route: 042
  2. FILGRASTIM [Concomitant]
     Active Substance: FILGRASTIM
     Dosage: UNK, DAILY
     Route: 058
  3. VELIPARIB [Suspect]
     Active Substance: VELIPARIB
     Indication: CERVIX CARCINOMA
     Dosage: 10 MG, BID
     Route: 048
  4. PEGFILGRASTIM [Concomitant]
     Active Substance: PEGFILGRASTIM
     Dosage: 6 MG, UNK
     Route: 058

REACTIONS (1)
  - Endocrine disorder [Unknown]
